FAERS Safety Report 5534200-4 (Version None)
Quarter: 2007Q4

REPORT INFORMATION
  Report Type: 
  Country: None (occurrence: None)
  Receive Date: 20071205
  Receipt Date: 20071126
  Transmission Date: 20080405
  Serious: Yes (Other)
  Sender: FDA-Public Use
  Company Number: US-BAYER-US-2007-009632

PATIENT
  Age: 29 Year
  Sex: Female
  Weight: 83 kg

DRUGS (9)
  1. YASMIN [Suspect]
     Indication: ORAL CONTRACEPTION
     Route: 048
     Dates: start: 20010101, end: 20070303
  2. BENADRYL ^WARNER-LAMBERT^ /USA/ [Suspect]
     Indication: URTICARIA
  3. CLARINEX /USA/ [Suspect]
     Indication: URTICARIA
  4. ALLEGRA [Suspect]
     Indication: URTICARIA
  5. HYDROXYZINE [Suspect]
     Indication: URTICARIA
  6. ZANTAC [Suspect]
     Indication: URTICARIA
  7. SINGULAIR [Suspect]
     Indication: URTICARIA
     Route: 048
     Dates: start: 20070212
  8. DAYPRO [Concomitant]
     Indication: BACK PAIN
     Route: 048
     Dates: start: 20050901, end: 20060401
  9. NAPROXEN [Concomitant]
     Indication: PAIN
     Route: 048

REACTIONS (13)
  - ANTICHOLINERGIC SYNDROME [None]
  - BLOOD IMMUNOGLOBULIN E INCREASED [None]
  - DRUG TOXICITY [None]
  - DRY MOUTH [None]
  - FACIAL PAIN [None]
  - FLUSHING [None]
  - PALPITATIONS [None]
  - PANIC ATTACK [None]
  - PRURITUS [None]
  - THYROXINE INCREASED [None]
  - TRI-IODOTHYRONINE INCREASED [None]
  - URTICARIA [None]
  - VISION BLURRED [None]
